FAERS Safety Report 15749667 (Version 3)
Quarter: 2020Q1

REPORT INFORMATION
  Report Type: Spontaneous
  Country: US (occurrence: US)
  Receive Date: 20181221
  Receipt Date: 20200121
  Transmission Date: 20200409
  Serious: No
  Sender: FDA-Public Use
  Company Number: US-PFIZER INC-2018491367

PATIENT
  Age: 69 Year
  Sex: Female

DRUGS (2)
  1. IBRANCE [Suspect]
     Active Substance: PALBOCICLIB
     Dosage: 100 MG, CYCLIC (DAILY DAY 1-21 OF 28 DAY CYCLE)
     Route: 048
     Dates: start: 201812
  2. IBRANCE [Suspect]
     Active Substance: PALBOCICLIB
     Indication: BREAST CANCER FEMALE
     Dosage: 125 MG, UNK

REACTIONS (4)
  - Mental disorder [Unknown]
  - White blood cell count decreased [Unknown]
  - Arthralgia [Unknown]
  - Neutrophil count decreased [Recovering/Resolving]
